FAERS Safety Report 4965238-3 (Version None)
Quarter: 2006Q1

REPORT INFORMATION
  Report Type: 
  Country: None (occurrence: None)
  Receive Date: 20060130
  Receipt Date: 20051111
  Transmission Date: 20060701
  Serious: No
  Sender: FDA-Public Use
  Company Number: COT_0276_2005

PATIENT
  Age: 51 Year
  Sex: Female
  Weight: 67.586 kg

DRUGS (1)
  1. VENTAVIS [Suspect]
     Indication: PULMONARY HYPERTENSION
     Dosage: 5 MCG 6 TO 9X/DAY IH
     Route: 055
     Dates: start: 20051108

REACTIONS (1)
  - BURNING SENSATION [None]
